FAERS Safety Report 8415149-6 (Version None)
Quarter: 2012Q2

REPORT INFORMATION
  Report Type: 
  Country: None (occurrence: None)
  Receive Date: 20120530
  Receipt Date: 20120517
  Transmission Date: 20120825
  Serious: Yes (Disabling, Other)
  Sender: FDA-Public Use
  Company Number: JPI-P-020822

PATIENT
  Age: 60 Year
  Sex: Female
  Weight: 55.3388 kg

DRUGS (24)
  1. XYREM [Suspect]
     Indication: SLEEP DISORDER
     Dosage: 6 GM (3 GM, 2 IN 1 D),ORAL  , 9 GM (4.5 GM,2 IN 1 D),ORAL
     Route: 048
     Dates: start: 20120101
  2. XYREM [Suspect]
     Indication: INSOMNIA
     Dosage: 6 GM (3 GM, 2 IN 1 D),ORAL  , 9 GM (4.5 GM,2 IN 1 D),ORAL
     Route: 048
     Dates: start: 20120101
  3. XYREM [Suspect]
     Indication: SLEEP DISORDER
     Dosage: 6 GM (3 GM, 2 IN 1 D),ORAL  , 9 GM (4.5 GM,2 IN 1 D),ORAL
     Route: 048
     Dates: start: 20110726
  4. XYREM [Suspect]
     Indication: INSOMNIA
     Dosage: 6 GM (3 GM, 2 IN 1 D),ORAL  , 9 GM (4.5 GM,2 IN 1 D),ORAL
     Route: 048
     Dates: start: 20110726
  5. XYREM [Suspect]
     Indication: SLEEP DISORDER
     Dosage: 6 GM (3 GM, 2 IN 1 D),ORAL  , 9 GM (4.5 GM,2 IN 1 D),ORAL
     Route: 048
     Dates: start: 20110831, end: 20120401
  6. XYREM [Suspect]
     Indication: INSOMNIA
     Dosage: 6 GM (3 GM, 2 IN 1 D),ORAL  , 9 GM (4.5 GM,2 IN 1 D),ORAL
     Route: 048
     Dates: start: 20110831, end: 20120401
  7. RAMIPRIL [Concomitant]
  8. AYR SINUS RINSE KIT [Concomitant]
  9. VITAMIN B COMPLEX CAP [Concomitant]
  10. LACTOBACILLUS RHAMNOSUS (CAPSULES) [Concomitant]
  11. NIACIN ER (TABLETS) [Concomitant]
  12. LONAZEPAM (TABLETS) [Concomitant]
  13. PANTOPRAZOLE [Concomitant]
  14. CYCLOSPORINE (EYE DROPS) [Concomitant]
  15. ASCORBIC ACID (TABLETS) [Concomitant]
  16. HYDROCHLOROTHIAZIDE [Concomitant]
  17. SIMVASTATIN [Concomitant]
  18. FISH OIL (CAPSULES) [Concomitant]
  19. VITAMIN D (CAPSULES) [Concomitant]
  20. GABAPENTIN [Concomitant]
  21. ASPIRIN BUFFERED (TABLETS) [Concomitant]
  22. ZOLPIDEM ER (TABLETS) [Concomitant]
  23. DESVENLAFAXINE SUCCINATE (TABLETS) [Concomitant]
  24. ACETYLSALICYLIC ACID SRT [Concomitant]

REACTIONS (19)
  - BLOOD GLUCOSE INCREASED [None]
  - NAUSEA [None]
  - INSOMNIA [None]
  - FATIGUE [None]
  - SELF INJURIOUS BEHAVIOUR [None]
  - SUICIDAL IDEATION [None]
  - VISION BLURRED [None]
  - LIVER DISORDER [None]
  - AGORAPHOBIA [None]
  - HEAD INJURY [None]
  - CATARACT OPERATION [None]
  - LOW DENSITY LIPOPROTEIN INCREASED [None]
  - BLOOD CHOLESTEROL INCREASED [None]
  - PARAESTHESIA [None]
  - BLOOD PRESSURE INCREASED [None]
  - CONDITION AGGRAVATED [None]
  - SLEEP DISORDER [None]
  - DEPRESSION [None]
  - DECREASED APPETITE [None]
